FAERS Safety Report 10258667 (Version 1)
Quarter: 2014Q2

REPORT INFORMATION
  Report Type: Spontaneous
  Country: NL (occurrence: None)
  Receive Date: 20140623
  Receipt Date: 20140623
  Transmission Date: 20141212
  Serious: Yes (Disabling)
  Sender: FDA-Public Use
  Company Number: SYM-2014-22149

PATIENT
  Age: 44 Year
  Sex: Female

DRUGS (2)
  1. VENLAFAXINE HYDROCHLORIDE [Suspect]
     Indication: DEPRESSION
     Route: 048
  2. WELLBUTRIN XR [Suspect]
     Indication: EMOTIONAL DISORDER
     Route: 048
     Dates: start: 199906

REACTIONS (1)
  - Myalgia [None]
